FAERS Safety Report 15487643 (Version 16)
Quarter: 2021Q4

REPORT INFORMATION
  Report Type: Spontaneous
  Country: JP (occurrence: JP)
  Receive Date: 20181011
  Receipt Date: 20211029
  Transmission Date: 20220303
  Serious: Yes (Hospitalization, Other)
  Sender: FDA-Public Use
  Company Number: JP-SANOFI-2018SA250302

PATIENT
  Age: 4 Year
  Sex: Male
  Weight: 15 kg

DRUGS (47)
  1. SABRIL [Suspect]
     Active Substance: VIGABATRIN
     Indication: Infantile spasms
     Dosage: UNK UNK, BID
     Route: 048
     Dates: start: 20180804, end: 20180904
  2. SABRIL [Suspect]
     Active Substance: VIGABATRIN
     Indication: Infantile spasms
     Dosage: 650 MG/DAY, BID
     Route: 048
     Dates: start: 20180618, end: 20180704
  3. SABRIL [Suspect]
     Active Substance: VIGABATRIN
     Dosage: 1300 MG/DAY, BID
     Route: 048
     Dates: start: 20180705, end: 20180803
  4. SABRIL [Suspect]
     Active Substance: VIGABATRIN
     Dosage: 1300 MG/DAY, BID
     Route: 048
     Dates: start: 20180905, end: 20190131
  5. SABRIL [Suspect]
     Active Substance: VIGABATRIN
     Dosage: 750 MG, BID
     Route: 048
     Dates: start: 20190426, end: 20190611
  6. SABRIL [Suspect]
     Active Substance: VIGABATRIN
     Dosage: 750 MG, BID
     Route: 048
     Dates: start: 20190201, end: 20200105
  7. SABRIL [Suspect]
     Active Substance: VIGABATRIN
     Dosage: 600 MG, BID
     Route: 048
     Dates: start: 20200106, end: 20200202
  8. SABRIL [Suspect]
     Active Substance: VIGABATRIN
     Dosage: 750 MG, BID
     Route: 048
     Dates: start: 20200203, end: 20200510
  9. SABRIL [Suspect]
     Active Substance: VIGABATRIN
     Dosage: 900 MG, BID
     Route: 048
     Dates: start: 20200511, end: 20200628
  10. SABRIL [Suspect]
     Active Substance: VIGABATRIN
     Dosage: 750 MG, BID
     Route: 048
     Dates: start: 20200629, end: 20200726
  11. SABRIL [Suspect]
     Active Substance: VIGABATRIN
     Dosage: 600 MG, BID
     Route: 048
     Dates: start: 20200727, end: 20200824
  12. SABRIL [Suspect]
     Active Substance: VIGABATRIN
     Dosage: 750 MG, BID
     Route: 048
     Dates: start: 20200825
  13. SABRIL [Suspect]
     Active Substance: VIGABATRIN
     Dosage: 750 MG, BID
     Route: 048
     Dates: start: 20210105
  14. SABRIL [Suspect]
     Active Substance: VIGABATRIN
     Dosage: 1500 MG/DAY
     Route: 048
     Dates: end: 20190425
  15. VIMPAT [Concomitant]
     Active Substance: LACOSAMIDE
     Indication: Infantile spasms
     Dosage: 90 MG, QD
     Route: 048
     Dates: end: 20180805
  16. VALPROATE SODIUM [Concomitant]
     Active Substance: VALPROATE SODIUM
     Indication: Infantile spasms
     Dosage: 600 MG, QD
     Route: 048
     Dates: end: 20190707
  17. PHENOBAL [PHENOBARBITAL SODIUM] [Concomitant]
     Indication: Infantile spasms
     Dosage: 80 MG, QD
     Route: 048
     Dates: end: 20201111
  18. LEVETIRACETAM [Concomitant]
     Active Substance: LEVETIRACETAM
     Indication: Infantile spasms
     Dosage: 520 MG, QD
     Route: 048
  19. LEVETIRACETAM [Concomitant]
     Active Substance: LEVETIRACETAM
     Dosage: DAILY DOSE 1200 MG, BID
     Route: 048
     Dates: start: 20200404
  20. PRANLUKAST [Concomitant]
     Active Substance: PRANLUKAST
     Indication: Asthma
     Dosage: 0.7 G, QD
     Route: 048
     Dates: end: 20200302
  21. PRANLUKAST [Concomitant]
     Active Substance: PRANLUKAST
     Dosage: 1 G, QD
     Route: 048
     Dates: start: 20200303
  22. PRANLUKAST [Concomitant]
     Active Substance: PRANLUKAST
     Dosage: DAILY DOSE 130 MG, BID
     Route: 048
     Dates: start: 20210105
  23. VALPROATE SODIUM [Concomitant]
     Active Substance: VALPROATE SODIUM
     Indication: Infantile spasms
     Dosage: 600 MG/DAY
     Route: 048
     Dates: start: 20190708, end: 20200628
  24. VALPROATE SODIUM [Concomitant]
     Active Substance: VALPROATE SODIUM
     Dosage: 800 MG/DAY
     Route: 048
     Dates: start: 20200629, end: 20200726
  25. VALPROATE SODIUM [Concomitant]
     Active Substance: VALPROATE SODIUM
     Dosage: 300 MG, TID
     Route: 048
     Dates: start: 20200727
  26. LEVOCARNITINE HYDROCHLORIDE [Concomitant]
     Active Substance: LEVOCARNITINE HYDROCHLORIDE
     Indication: Product used for unknown indication
     Dosage: DAILY DOSE: 500 MG
     Route: 048
  27. LEVOCARNITINE HYDROCHLORIDE [Concomitant]
     Active Substance: LEVOCARNITINE HYDROCHLORIDE
     Dosage: 10 ML/DAY
     Route: 048
  28. LEVOCARNITINE HYDROCHLORIDE [Concomitant]
     Active Substance: LEVOCARNITINE HYDROCHLORIDE
     Dosage: 5 MG, QD
     Route: 048
     Dates: start: 20210105
  29. ROZEREM [Concomitant]
     Active Substance: RAMELTEON
     Indication: Product used for unknown indication
     Dosage: 2.4 MG/DAY
     Route: 048
  30. MOVICOL [MACROGOL 4000;POTASSIUM CHLORIDE;SODIUM BICARBONATE;SODIUM CH [Concomitant]
     Indication: Gastrointestinal motility disorder
     Dosage: 1 SACHET, AFTER BREAKFAST
     Route: 048
     Dates: start: 20200527
  31. MOSAPRIDE CITRATE [Concomitant]
     Active Substance: MOSAPRIDE CITRATE
     Indication: Product used for unknown indication
     Dosage: 15 MG/DAY, BID
     Route: 048
  32. MOSAPRIDE CITRATE [Concomitant]
     Active Substance: MOSAPRIDE CITRATE
     Dosage: 1.5 G/DAY
     Route: 048
     Dates: start: 20200527
  33. PULMICORT TURBUHALER [Concomitant]
     Active Substance: BUDESONIDE
     Indication: Gastrointestinal motility disorder
     Dosage: 0.25 MG/DAY
     Route: 055
     Dates: end: 20210107
  34. URALYT U [POTASSIUM CITRATE;SODIUM CITRATE DIHYDRATE] [Concomitant]
     Indication: Gastrointestinal motility disorder
     Dosage: 1 G/DAY
     Route: 048
     Dates: start: 20190410
  35. URALYT U [POTASSIUM CITRATE;SODIUM CITRATE DIHYDRATE] [Concomitant]
     Dosage: 1.5 G/DAY
     Route: 048
     Dates: start: 20200527
  36. RIKKUNSHITO [ATRACTYLODES SPP. RHIZOME;CITRUS RETICULATA PEEL;GLYCYRRH [Concomitant]
     Indication: Gastrointestinal motility disorder
     Dosage: 2 G/DAY, BID
     Route: 048
     Dates: start: 20190424
  37. AMINO ACIDS\DEXTROSE\ELECTROLYTES NOS\SOYBEAN OIL\VITAMINS [Concomitant]
     Active Substance: AMINO ACIDS\DEXTROSE\ELECTROLYTES NOS\SOYBEAN OIL\VITAMINS
     Indication: Product used for unknown indication
     Dosage: 900 ML/DAY
     Route: 065
     Dates: start: 20210105
  38. ZONISAMIDE [Concomitant]
     Active Substance: ZONISAMIDE
     Indication: Infantile spasms
     Dosage: 18 MG/DAY
     Route: 048
     Dates: start: 20201222, end: 20210104
  39. ZONISAMIDE [Concomitant]
     Active Substance: ZONISAMIDE
     Dosage: 18 MG, BID
     Route: 048
     Dates: start: 20210105, end: 20210114
  40. ZONISAMIDE [Concomitant]
     Active Substance: ZONISAMIDE
     Dosage: 54 MG/DAY
     Route: 048
     Dates: start: 20210115
  41. BRITAI [Concomitant]
     Indication: Product used for unknown indication
     Dosage: 8 G, QD AFTER DINNER
     Route: 048
     Dates: start: 20210105
  42. ENEVO [Concomitant]
     Indication: Product used for unknown indication
     Dosage: ONCE IN THE EVENING
     Route: 065
     Dates: start: 20210105
  43. PRANLUKAST [Concomitant]
     Active Substance: PRANLUKAST
     Indication: Product used for unknown indication
     Dosage: 10 G/DAY
     Route: 048
     Dates: start: 20200303
  44. PANVITAN [ASCORBIC ACID;CALCIUM PANTOTHENATE;CYANOCOBALAMIN;ERGOCALCIF [Concomitant]
     Indication: Prophylaxis
     Dosage: 0.4 G/DAY
     Route: 048
     Dates: start: 20190515
  45. PANVITAN [ASCORBIC ACID;CALCIUM PANTOTHENATE;CYANOCOBALAMIN;ERGOCALCIF [Concomitant]
     Indication: Investigation
  46. BIOTIN [Concomitant]
     Active Substance: BIOTIN
     Indication: Prophylaxis
     Dosage: 0.4 G/DAY
     Route: 048
     Dates: start: 20190515
  47. BIOTIN [Concomitant]
     Active Substance: BIOTIN
     Indication: Investigation

REACTIONS (8)
  - Oral discharge [Recovering/Resolving]
  - Asthma [Recovering/Resolving]
  - Pneumonia [Recovering/Resolving]
  - Retinogram abnormal [Unknown]
  - Constipation [Recovering/Resolving]
  - Dyspepsia [Recovering/Resolving]
  - Upper respiratory tract inflammation [Recovering/Resolving]
  - Asthma [Recovering/Resolving]

NARRATIVE: CASE EVENT DATE: 20180804
